FAERS Safety Report 8436922-4 (Version None)
Quarter: 2012Q2

REPORT INFORMATION
  Report Type: 
  Country: None (occurrence: None)
  Receive Date: 20120614
  Receipt Date: 20120103
  Transmission Date: 20120825
  Serious: No
  Sender: FDA-Public Use
  Company Number: US-AMGEN-USASP2012000103

PATIENT
  Age: 42 Year
  Sex: Male

DRUGS (1)
  1. ARANESP [Suspect]
     Indication: RHEUMATOID ARTHRITIS
     Dosage: 50 MG, QWK
     Dates: start: 20110115

REACTIONS (2)
  - INJECTION SITE PAIN [None]
  - ERYTHEMA [None]
